FAERS Safety Report 4886072-9 (Version None)
Quarter: 2006Q1

REPORT INFORMATION
  Report Type: 
  Country: None (occurrence: None)
  Receive Date: 20060117
  Receipt Date: 20060111
  Transmission Date: 20060701
  Serious: Yes (Hospitalization, Other)
  Sender: FDA-Public Use
  Company Number: 2006AL000105

PATIENT
  Sex: Female

DRUGS (1)
  1. KADIAN [Suspect]

REACTIONS (2)
  - COMA [None]
  - SUICIDE ATTEMPT [None]
